FAERS Safety Report 5389905-5 (Version None)
Quarter: 2007Q3

REPORT INFORMATION
  Report Type: 
  Country: None (occurrence: None)
  Receive Date: 20070716
  Receipt Date: 20070716
  Transmission Date: 20080115
  Serious: No
  Sender: FDA-Public Use
  Company Number: None

PATIENT
  Sex: Female
  Weight: 68.0396 kg

DRUGS (2)
  1. ZELNORM [Suspect]
     Indication: GASTRIC HYPOMOTILITY
     Dates: start: 20030101, end: 20070713
  2. ZELNORM [Suspect]
     Indication: IRRITABLE BOWEL SYNDROME
     Dates: start: 20030101, end: 20070713

REACTIONS (2)
  - ABDOMINAL PAIN UPPER [None]
  - TREATMENT NONCOMPLIANCE [None]
